FAERS Safety Report 12910887 (Version 2)
Quarter: 2017Q1

REPORT INFORMATION
  Report Type: Spontaneous
  Country: US (occurrence: US)
  Receive Date: 20161104
  Receipt Date: 20170303
  Transmission Date: 20170428
  Serious: Yes (Hospitalization)
  Sender: FDA-Public Use
  Company Number: US-JNJFOC-20161014954

PATIENT
  Age: 32 Year
  Sex: Male

DRUGS (4)
  1. XARELTO [Suspect]
     Active Substance: RIVAROXABAN
     Indication: SPLENIC THROMBOSIS
     Route: 048
     Dates: start: 20140126, end: 20140130
  2. XARELTO [Suspect]
     Active Substance: RIVAROXABAN
     Indication: SPLENIC THROMBOSIS
     Route: 048
     Dates: start: 201308, end: 201310
  3. XARELTO [Suspect]
     Active Substance: RIVAROXABAN
     Indication: DEEP VEIN THROMBOSIS
     Route: 048
     Dates: start: 20140126, end: 20140130
  4. XARELTO [Suspect]
     Active Substance: RIVAROXABAN
     Indication: DEEP VEIN THROMBOSIS
     Route: 048
     Dates: start: 201308, end: 201310

REACTIONS (2)
  - Gastrointestinal haemorrhage [Unknown]
  - Epistaxis [Recovering/Resolving]

NARRATIVE: CASE EVENT DATE: 20131017
